FAERS Safety Report 6919467-X (Version None)
Quarter: 2010Q3

REPORT INFORMATION
  Report Type: 
  Country: None (occurrence: None)
  Receive Date: 20100811
  Receipt Date: 20100804
  Transmission Date: 20110219
  Serious: Yes (Other)
  Sender: FDA-Public Use
  Company Number: B0669300A

PATIENT
  Sex: Female

DRUGS (7)
  1. DILATREND [Suspect]
     Indication: PRODUCT USED FOR UNKNOWN INDICATION
     Route: 065
     Dates: start: 20090714, end: 20100713
  2. LUVION [Suspect]
     Indication: PRODUCT USED FOR UNKNOWN INDICATION
     Route: 065
     Dates: start: 20090714, end: 20100713
  3. LASIX [Suspect]
     Indication: PRODUCT USED FOR UNKNOWN INDICATION
     Route: 065
     Dates: start: 20090714, end: 20100713
  4. TRIATEC [Concomitant]
     Route: 065
     Dates: start: 20090714, end: 20100713
  5. LANOXIN [Concomitant]
     Route: 065
     Dates: start: 20090714, end: 20100713
  6. MADOPAR [Concomitant]
     Route: 065
     Dates: start: 20090714, end: 20100713
  7. DIAMICRON [Concomitant]
     Route: 065
     Dates: start: 20090714, end: 20100713

REACTIONS (3)
  - ASTHENIA [None]
  - DEHYDRATION [None]
  - LOSS OF CONSCIOUSNESS [None]
